FAERS Safety Report 9267228 (Version 1)
Quarter: 2013Q2

REPORT INFORMATION
  Report Type: Report from Study
  Country: MX (occurrence: MX)
  Receive Date: 20130502
  Receipt Date: 20130502
  Transmission Date: 20140414
  Serious: Yes (Other)
  Sender: FDA-Public Use
  Company Number: PHHY2013MX043207

PATIENT
  Age: 47 Year
  Sex: Female

DRUGS (3)
  1. ONBREZ [Suspect]
     Indication: CHRONIC OBSTRUCTIVE PULMONARY DISEASE
     Dosage: 150 UG, QD
     Dates: start: 20130226
  2. ADEPSIQUE [Concomitant]
     Dosage: 1 DF, DAILY
     Dates: start: 20130226
  3. LIVIAL [Concomitant]
     Dosage: 1 DF, DAILY
     Dates: start: 20130226

REACTIONS (3)
  - Swelling [Not Recovered/Not Resolved]
  - Cold sweat [Not Recovered/Not Resolved]
  - Chest pain [Not Recovered/Not Resolved]
